FAERS Safety Report 8986137 (Version 1)
Quarter: 2012Q4

REPORT INFORMATION
  Report Type: 
  Country: GB (occurrence: None)
  Receive Date: 20121018
  Receipt Date: 20121018
  Transmission Date: 20130627
  Serious: Yes (Other)
  Sender: FDA-Public Use
  Company Number: 219036

PATIENT
  Sex: Male

DRUGS (1)
  1. DAIVOBET [Suspect]
     Indication: PSORIASIS
     Route: 061
     Dates: start: 20120111

REACTIONS (1)
  - Mycosis fungoides [None]
